FAERS Safety Report 15784421 (Version 5)
Quarter: 2019Q1

REPORT INFORMATION
  Report Type: Report from Study
  Country: GR (occurrence: GR)
  Receive Date: 20190103
  Receipt Date: 20190201
  Transmission Date: 20190417
  Serious: Yes (Hospitalization)
  Sender: FDA-Public Use
  Company Number: GR-ROCHE-2237801

PATIENT
  Age: 60 Year
  Sex: Male
  Weight: 82 kg

DRUGS (10)
  1. MAXIDEX [Concomitant]
     Active Substance: DEXAMETHASONE
     Indication: UVEITIS
     Dosage: 1 OTHER
     Route: 065
     Dates: start: 20181003
  2. ZOVIRAX [Concomitant]
     Active Substance: ACYCLOVIR
     Indication: APHTHOUS ULCER
     Route: 065
     Dates: start: 20181118, end: 20181123
  3. FUNGUSTATIN [Concomitant]
     Active Substance: FLUCONAZOLE
     Route: 065
     Dates: start: 20181228
  4. CYCLOGYL [Concomitant]
     Active Substance: CYCLOPENTOLATE HYDROCHLORIDE
     Indication: UVEITIS
     Route: 065
     Dates: start: 20181003
  5. VEMURAFENIB. [Suspect]
     Active Substance: VEMURAFENIB
     Indication: METASTATIC MALIGNANT MELANOMA
     Dosage: ON 23/DEC/2018, HE RECEIVED THE MOST RECENT DOSE OF VEMURAFENIB PRIOR TO AE AND SAE ONSET.
     Route: 048
     Dates: start: 20171221
  6. COBIMETINIB. [Suspect]
     Active Substance: COBIMETINIB
     Indication: METASTATIC MALIGNANT MELANOMA
     Dosage: ON 23/DEC/2018, HE RECEIVED THE MOST RECENT DOSE OF COBIMETINIB PRIOR TO AE AND SAE ONSET.
     Route: 048
     Dates: start: 20171221
  7. TAZOCIN [Concomitant]
     Active Substance: PIPERACILLIN SODIUM\TAZOBACTAM SODIUM
     Indication: PYREXIA
     Route: 065
     Dates: start: 20181118, end: 20181123
  8. BLINDED ATEZOLIZUMAB [Suspect]
     Active Substance: ATEZOLIZUMAB
     Indication: METASTATIC MALIGNANT MELANOMA
     Dosage: ON 13/DEC/2018: HE RECEIVED THE MOST RECENT DOSE OF BLINDED ATEZOLIZUMAB PRIOR TO AE AND SAE ONSET.
     Route: 042
     Dates: start: 20180125
  9. FUNGUSTATIN [Concomitant]
     Active Substance: FLUCONAZOLE
     Indication: APHTHOUS ULCER
     Route: 065
     Dates: start: 20181118, end: 20181123
  10. LOSEC [Concomitant]
     Active Substance: OMEPRAZOLE
     Route: 065
     Dates: start: 20181228

REACTIONS (1)
  - Colitis [Recovered/Resolved]

NARRATIVE: CASE EVENT DATE: 20181220
